FAERS Safety Report 5740955-6 (Version None)
Quarter: 2008Q2

REPORT INFORMATION
  Report Type: 
  Country: None (occurrence: None)
  Receive Date: 20080515
  Receipt Date: 20080125
  Transmission Date: 20081010
  Serious: No
  Sender: FDA-Public Use
  Company Number: WAES 0801USA05350

PATIENT
  Age: 51 Year
  Sex: Male

DRUGS (4)
  1. ISENTRESS [Suspect]
     Indication: HIV INFECTION
     Dosage: PO
     Route: 048
     Dates: start: 20071217
  2. PREZISTA [Concomitant]
  3. RETROVIR [Concomitant]
  4. TRUVADA [Concomitant]

REACTIONS (1)
  - RASH GENERALISED [None]
